FAERS Safety Report 9240666 (Version 1)
Quarter: 2013Q1

REPORT INFORMATION
  Report Type: Spontaneous
  Country: None (occurrence: None)
  Receive Date: 20121120
  Receipt Date: 20121120
  Transmission Date: 20140127
  Serious: No
  Sender: FDA-Public Use
  Company Number: 1000038246

PATIENT
  Age: 44 Year
  Sex: Male

DRUGS (3)
  1. VIIBRYD [Suspect]
     Indication: DEPRESSION
     Dosage: 40 MG (40 MG, 1 IN 1 D), ORAL
     Route: 048
     Dates: start: 201203, end: 201205
  2. DIAZEPAM (DIAZEPAM) (DIAZEPAM) [Concomitant]
  3. ?SAPHRIS (ASENAPINE MALEATE) (ASENAPINE MALEATE) [Concomitant]

REACTIONS (5)
  - Restlessness [None]
  - Insomnia [None]
  - Night sweats [None]
  - Paraesthesia [None]
  - Abnormal dreams [None]
